FAERS Safety Report 21513741 (Version 3)
Quarter: 2025Q1

REPORT INFORMATION
  Report Type: Spontaneous
  Country: US (occurrence: US)
  Receive Date: 20221027
  Receipt Date: 20250123
  Transmission Date: 20250409
  Serious: Yes (Other)
  Sender: SANOFI AVENTIS
  Company Number: US-SA-SAC20221025001057

PATIENT
  Age: 73 Year
  Sex: Male

DRUGS (14)
  1. DUPIXENT [Suspect]
     Active Substance: DUPILUMAB
     Indication: Nasal polyps
     Dosage: 300 MG, QOW
     Route: 058
     Dates: start: 20220921
  2. ALENDRONATE [Concomitant]
     Active Substance: ALENDRONATE SODIUM
  3. AMLODIPINE [Concomitant]
     Active Substance: AMLODIPINE BESYLATE
  4. ATORVASTATIN [Concomitant]
     Active Substance: ATORVASTATIN
  5. NUCALA [Concomitant]
     Active Substance: MEPOLIZUMAB
  6. OMEPRAZOLE [Concomitant]
     Active Substance: OMEPRAZOLE
  7. DICLOFENAC [Concomitant]
     Active Substance: DICLOFENAC
  8. EPINEPHRINE [Concomitant]
     Active Substance: EPINEPHRINE
  9. OFLOXACIN [Concomitant]
     Active Substance: OFLOXACIN
  10. PROLENSA [Concomitant]
     Active Substance: BROMFENAC SODIUM
  11. VITAMIN B [Concomitant]
     Active Substance: VITAMIN B
  12. BETAMETHASONE CLOTRIMAZOLE [Concomitant]
     Active Substance: BETAMETHASONE DIPROPIONATE\CLOTRIMAZOLE
  13. OXYCODONE [Concomitant]
     Active Substance: OXYCODONE
  14. EZETIMIBE [Concomitant]
     Active Substance: EZETIMIBE

REACTIONS (3)
  - Shoulder arthroplasty [Unknown]
  - Eye operation [Unknown]
  - Therapeutic response decreased [Unknown]

NARRATIVE: CASE EVENT DATE: 20220101
